FAERS Safety Report 9044203 (Version 1)
Quarter: 2013Q1

REPORT INFORMATION
  Report Type: Report from Study
  Country: US (occurrence: US)
  Receive Date: 20130130
  Receipt Date: 20130130
  Transmission Date: 20140127
  Serious: No
  Sender: FDA-Public Use
  Company Number: US-ABBOTT-12P-163-0953788-00

PATIENT
  Age: 80 Year
  Sex: Female
  Weight: 86.71 kg

DRUGS (4)
  1. HUMIRA 40 MG/0.8 ML PEN [Suspect]
     Indication: PSORIATIC ARTHROPATHY
  2. SYNTHROID [Concomitant]
     Indication: HYPOTHYROIDISM
  3. NEXIUM [Concomitant]
     Indication: GASTROOESOPHAGEAL REFLUX DISEASE
  4. DIOVAN HCT [Concomitant]
     Indication: HYPERTENSION

REACTIONS (2)
  - Chromaturia [Not Recovered/Not Resolved]
  - Drug ineffective [Not Recovered/Not Resolved]
